FAERS Safety Report 17091726 (Version 1)
Quarter: 2019Q4

REPORT INFORMATION
  Report Type: Spontaneous
  Country: RU (occurrence: RU)
  Receive Date: 20191129
  Receipt Date: 20191129
  Transmission Date: 20200122
  Serious: Yes (Death, Other)
  Sender: FDA-Public Use
  Company Number: RU-ASTELLAS-2019US047201

PATIENT
  Age: 32 Year
  Sex: Female

DRUGS (4)
  1. CASPOFUNGIN [Suspect]
     Active Substance: CASPOFUNGIN
     Indication: SYSTEMIC CANDIDA
     Dosage: UNK UNK, UNKNOWN FREQ.
     Route: 065
     Dates: start: 2019, end: 2019
  2. FLUCONAZOLE. [Suspect]
     Active Substance: FLUCONAZOLE
     Indication: SYSTEMIC CANDIDA
     Dosage: UNK UNK, UNKNOWN FREQ.
     Route: 065
     Dates: start: 2019
  3. AMPHOTERICIN B, LIPOSOME [Suspect]
     Active Substance: AMPHOTERICIN B
     Indication: SYSTEMIC CANDIDA
     Dosage: UNK UNK, UNKNOWN FREQ.
     Route: 065
     Dates: start: 201902, end: 201902
  4. AMPHOTERICIN B DEOXYCHOLATE [Suspect]
     Active Substance: AMPHOTERICIN B
     Indication: SYSTEMIC CANDIDA
     Dosage: UNK UNK, UNKNOWN FREQ.
     Route: 065
     Dates: start: 2019, end: 2019

REACTIONS (1)
  - Drug ineffective [Fatal]

NARRATIVE: CASE EVENT DATE: 201902
